FAERS Safety Report 9214080 (Version 1)
Quarter: 2013Q2

REPORT INFORMATION
  Report Type: Report from Study
  Country: US (occurrence: US)
  Receive Date: 20130405
  Receipt Date: 20130405
  Transmission Date: 20140414
  Serious: Yes (Other)
  Sender: FDA-Public Use
  Company Number: US-ABBOTT-13P-163-1070524-00

PATIENT
  Age: 65 Year
  Sex: Female
  Weight: 88.53 kg

DRUGS (16)
  1. HUMIRA [Suspect]
     Indication: RHEUMATOID ARTHRITIS
     Dates: start: 200704
  2. HUMIRA [Suspect]
  3. HUMIRA [Suspect]
  4. AMOLODIPINE [Concomitant]
     Indication: HYPERTENSION
  5. ASPIRIN [Concomitant]
     Indication: CARDIAC DISORDER
  6. TRILIPIX [Concomitant]
     Indication: BLOOD TRIGLYCERIDES INCREASED
  7. Q10 [Concomitant]
     Indication: RENAL DISORDER
  8. Q10 [Concomitant]
     Indication: PROPHYLAXIS
  9. GLUCOSAMINE CHONDROITIN [Concomitant]
     Indication: ARTHROPATHY
  10. HYDROCHLOROTHIAZIDE [Concomitant]
     Indication: HYPERTENSION
  11. LOSARTAN [Concomitant]
     Indication: HYPERTENSION
  12. METFORMIN [Concomitant]
     Indication: TYPE 2 DIABETES MELLITUS
  13. MULTIVITAMIN [Concomitant]
     Indication: VITAMIN SUPPLEMENTATION
  14. OXYBUTIN [Concomitant]
     Indication: URINARY INCONTINENCE
  15. PRESERVISION [Concomitant]
     Indication: MACULAR DEGENERATION
  16. ACIPHEX [Concomitant]
     Indication: GASTROOESOPHAGEAL REFLUX DISEASE

REACTIONS (14)
  - Drug hypersensitivity [Unknown]
  - Injection site rash [Recovered/Resolved]
  - Muscle spasms [Recovered/Resolved]
  - Arthralgia [Recovered/Resolved]
  - Bunion [Recovered/Resolved]
  - Ligament rupture [Recovered/Resolved]
  - Device breakage [Recovered/Resolved]
  - Fall [Recovered/Resolved]
  - Tendon rupture [Recovered/Resolved]
  - Rotator cuff syndrome [Recovered/Resolved]
  - Musculoskeletal pain [Recovered/Resolved]
  - Bacterial infection [Recovered/Resolved]
  - Cataract [Not Recovered/Not Resolved]
  - Staphylococcal infection [Recovered/Resolved]
